FAERS Safety Report 11615659 (Version 6)
Quarter: 2016Q2

REPORT INFORMATION
  Report Type: Report from Study
  Country: BR (occurrence: BR)
  Receive Date: 20151009
  Receipt Date: 20160629
  Transmission Date: 20160815
  Serious: Yes (Hospitalization, Other)
  Sender: FDA-Public Use
  Company Number: BR-ABBVIE-15K-020-1476424-00

PATIENT
  Age: 37 Year
  Sex: Male
  Weight: 71 kg

DRUGS (3)
  1. HUMIRA [Suspect]
     Active Substance: ADALIMUMAB
     Route: 058
     Dates: start: 201601
  2. HUMIRA [Suspect]
     Active Substance: ADALIMUMAB
     Indication: CROHN^S DISEASE
     Route: 058
     Dates: start: 20130418
  3. AZATHIOPRINE. [Suspect]
     Active Substance: AZATHIOPRINE
     Indication: CROHN^S DISEASE
     Dosage: 20-50-100 MG; 1 TABLET DAILY
     Route: 048
     Dates: start: 201509

REACTIONS (33)
  - Crohn^s disease [Recovered/Resolved]
  - Eye pruritus [Not Recovered/Not Resolved]
  - Pain [Not Recovered/Not Resolved]
  - Ocular hyperaemia [Not Recovered/Not Resolved]
  - Irritability [Unknown]
  - Procedural pain [Unknown]
  - Diarrhoea [Not Recovered/Not Resolved]
  - Anal fistula [Not Recovered/Not Resolved]
  - Somnolence [Not Recovered/Not Resolved]
  - Ultrasound abdomen abnormal [Unknown]
  - Gait disturbance [Unknown]
  - Emotional distress [Unknown]
  - Post procedural complication [Unknown]
  - Proctalgia [Not Recovered/Not Resolved]
  - Intestinal ulcer [Unknown]
  - Post procedural complication [Unknown]
  - Dry eye [Not Recovered/Not Resolved]
  - Blood test abnormal [Unknown]
  - Immunodeficiency [Recovering/Resolving]
  - Anal abscess [Recovering/Resolving]
  - Headache [Not Recovered/Not Resolved]
  - Incorrect route of drug administration [Unknown]
  - Intestinal fistula [Not Recovered/Not Resolved]
  - Colonoscopy abnormal [Unknown]
  - Haemorrhoids [Recovered/Resolved]
  - Skin wound [Recovered/Resolved]
  - Gastritis [Not Recovered/Not Resolved]
  - Blood triglycerides abnormal [Unknown]
  - Anaemia [Unknown]
  - Herpes virus infection [Recovering/Resolving]
  - Anal incontinence [Not Recovered/Not Resolved]
  - No therapeutic response [Unknown]
  - Aphthous ulcer [Recovering/Resolving]

NARRATIVE: CASE EVENT DATE: 2014
